FAERS Safety Report 5371823-X (Version None)
Quarter: 2007Q2

REPORT INFORMATION
  Report Type: 
  Country: None (occurrence: None)
  Receive Date: 20070627
  Receipt Date: 20070620
  Transmission Date: 20071010
  Serious: Yes (Hospitalization, Other)
  Sender: FDA-Public Use
  Company Number: US-ASTRAZENECA-2007UW14818

PATIENT
  Sex: Male
  Weight: 2.4 kg

DRUGS (3)
  1. ZOMIG [Suspect]
     Indication: MIGRAINE
     Route: 015
     Dates: end: 20050801
  2. REBIF [Suspect]
     Indication: MULTIPLE SCLEROSIS
     Route: 015
     Dates: start: 20050622, end: 20050801
  3. MOTRIN [Concomitant]
     Route: 048
     Dates: end: 20050801

REACTIONS (5)
  - ASPIRATION [None]
  - ASTHMA [None]
  - DYSPHAGIA [None]
  - DYSPNOEA [None]
  - NYSTAGMUS [None]
